FAERS Safety Report 9056078 (Version 1)
Quarter: 2013Q1

REPORT INFORMATION
  Report Type: Spontaneous
  Country: US (occurrence: US)
  Receive Date: 20130205
  Receipt Date: 20130205
  Transmission Date: 20140127
  Serious: Yes (Other)
  Sender: FDA-Public Use
  Company Number: US-ELI_LILLY_AND_COMPANY-US201301009374

PATIENT
  Sex: Female

DRUGS (7)
  1. CYMBALTA [Suspect]
     Indication: PAIN
     Dosage: 60 MG, BID
  2. PROZAC [Suspect]
     Indication: DEPRESSION
     Dosage: 40 MG, UNK
  3. SIMVASTATIN [Concomitant]
  4. REGLAN [Concomitant]
  5. NITRO                              /00003201/ [Concomitant]
     Indication: PALPITATIONS
  6. PERCOCET [Concomitant]
  7. XANAX [Concomitant]

REACTIONS (3)
  - Exfoliative rash [Unknown]
  - Drug ineffective [Unknown]
  - Drug ineffective [Unknown]
